FAERS Safety Report 8386296-2 (Version None)
Quarter: 2012Q2

REPORT INFORMATION
  Report Type: 
  Country: None (occurrence: None)
  Receive Date: 20120525
  Receipt Date: 20120516
  Transmission Date: 20120825
  Serious: Yes (Death, Hospitalization)
  Sender: FDA-Public Use
  Company Number: FR-SANOFI-AVENTIS-2012SA035690

PATIENT
  Age: 81 Year
  Sex: Male

DRUGS (4)
  1. JEVTANA KIT [Suspect]
     Indication: PROSTATE CANCER METASTATIC
     Route: 065
     Dates: end: 20120208
  2. ANTINEOPLASTIC AGENTS [Concomitant]
     Dates: start: 20111001, end: 20120201
  3. THERAPEUTIC RADIOPHARMACEUTICALS [Suspect]
     Indication: PROSTATE CANCER METASTATIC
     Route: 065
     Dates: start: 20120213, end: 20120228
  4. JEVTANA KIT [Suspect]
     Route: 065
     Dates: end: 20120322

REACTIONS (9)
  - ANAEMIA [None]
  - SEPTIC SHOCK [None]
  - APLASIA [None]
  - BACTERIAL TEST POSITIVE [None]
  - DECREASED APPETITE [None]
  - ABDOMINAL PAIN [None]
  - THROMBOCYTOPENIA [None]
  - PETECHIAE [None]
  - DIARRHOEA [None]
